FAERS Safety Report 9926094 (Version 3)
Quarter: 2014Q2

REPORT INFORMATION
  Report Type: Spontaneous
  Country: CH (occurrence: CH)
  Receive Date: 20140226
  Receipt Date: 20140404
  Transmission Date: 20141212
  Serious: Yes (Hospitalization, Other)
  Sender: FDA-Public Use
  Company Number: CH-JNJFOC-20140212932

PATIENT
  Sex: Female

DRUGS (3)
  1. IBRUTINIB [Suspect]
     Indication: CHRONIC LYMPHOCYTIC LEUKAEMIA
     Route: 048
     Dates: start: 20140204, end: 201402
  2. IBRUTINIB [Suspect]
     Indication: CHRONIC LYMPHOCYTIC LEUKAEMIA
     Route: 048
     Dates: start: 2014
  3. HEPARIN [Concomitant]
     Indication: PULMONARY EMBOLISM

REACTIONS (3)
  - Compartment syndrome [Unknown]
  - Muscle haemorrhage [Unknown]
  - Lymphocytosis [Recovering/Resolving]
